FAERS Safety Report 8202749-1 (Version None)
Quarter: 2012Q1

REPORT INFORMATION
  Report Type: 
  Country: None (occurrence: None)
  Receive Date: 20120312
  Receipt Date: 20120312
  Transmission Date: 20120608
  Serious: No
  Sender: FDA-Public Use
  Company Number: None

PATIENT
  Sex: Male
  Weight: 102.05 kg

DRUGS (2)
  1. FINASTERIDE [Suspect]
     Indication: ALOPECIA
     Dosage: 1/DAY
     Route: 048
     Dates: start: 20060101, end: 20100101
  2. PROPECIA [Concomitant]
     Indication: ALOPECIA
     Dosage: 1/DAY
     Route: 048
     Dates: start: 20100102, end: 20120929

REACTIONS (3)
  - DEPRESSION [None]
  - SOCIAL PROBLEM [None]
  - LIBIDO DECREASED [None]
